FAERS Safety Report 7194186-6 (Version None)
Quarter: 2010Q4

REPORT INFORMATION
  Report Type: 
  Country: None (occurrence: None)
  Receive Date: 20101223
  Receipt Date: 20101215
  Transmission Date: 20110411
  Serious: Yes (Hospitalization)
  Sender: FDA-Public Use
  Company Number: GB-TEVA-260742ISR

PATIENT
  Age: 69 Year
  Sex: Female

DRUGS (2)
  1. OXALIPLATIN [Suspect]
     Indication: COLON CANCER STAGE II
     Route: 042
     Dates: start: 20101126, end: 20101126
  2. CAPECITABINE [Suspect]
     Indication: COLON CANCER STAGE II
     Route: 048
     Dates: start: 20101126, end: 20101129

REACTIONS (6)
  - CEREBROVASCULAR ACCIDENT [None]
  - FATIGUE [None]
  - HEMIPARESIS [None]
  - HEMISENSORY NEGLECT [None]
  - MEMORY IMPAIRMENT [None]
  - NEUROPATHY PERIPHERAL [None]
